FAERS Safety Report 6115407-4 (Version None)
Quarter: 2009Q1

REPORT INFORMATION
  Report Type: 
  Country: None (occurrence: None)
  Receive Date: 20090313
  Receipt Date: 20090309
  Transmission Date: 20090719
  Serious: Yes (Other)
  Sender: FDA-Public Use
  Company Number: US-BRISTOL-MYERS SQUIBB COMPANY-14519268

PATIENT
  Age: 44 Year
  Sex: Female

DRUGS (3)
  1. ORENCIA [Suspect]
     Indication: RHEUMATOID ARTHRITIS
     Dosage: DURATION OF ADMINISTRATION IS ONE DOSE
     Route: 042
     Dates: start: 20080925
  2. CORTEF [Concomitant]
     Indication: SYNCOPE
  3. HYDROXYCHLOROQUINE [Concomitant]

REACTIONS (4)
  - ATAXIA [None]
  - OPTIC NEURITIS [None]
  - SYNCOPE [None]
  - VERTIGO [None]
